FAERS Safety Report 9250811 (Version 2)
Quarter: 2013Q4

REPORT INFORMATION
  Report Type: Spontaneous
  Country: US (occurrence: US)
  Receive Date: 20130424
  Receipt Date: 20131227
  Transmission Date: 20140711
  Serious: Yes (Hospitalization, Other)
  Sender: FDA-Public Use
  Company Number: US-ASTRAZENECA-2013SE27435

PATIENT
  Age: 49 Year
  Sex: Female
  Weight: 113.4 kg

DRUGS (7)
  1. NEXIUM [Suspect]
     Indication: GASTROOESOPHAGEAL REFLUX DISEASE
     Route: 048
     Dates: start: 2002, end: 2013
  2. NEXIUM [Suspect]
     Indication: GASTROOESOPHAGEAL REFLUX DISEASE
     Route: 048
     Dates: start: 20021004
  3. TUMS [Concomitant]
     Indication: GASTROOESOPHAGEAL REFLUX DISEASE
     Dosage: OVER THE COUNTER AS NEEDED
     Dates: start: 2002
  4. PEPTO BISMOL [Concomitant]
     Indication: GASTROOESOPHAGEAL REFLUX DISEASE
     Dosage: OVER THE COUNTER AS NEEDED
     Dates: start: 2002
  5. IBUPROFEN [Concomitant]
     Dosage: 800 MG TABLET 1 BY MOUTH EVERY EIGHT HOURS AS NEEDED.
  6. CODEINE [Concomitant]
     Dosage: 1 TAB Q 8HRS
  7. AMBIEN [Concomitant]

REACTIONS (16)
  - Convulsion [Unknown]
  - Bone disorder [Unknown]
  - Musculoskeletal discomfort [Unknown]
  - Osteoporosis [Unknown]
  - Lower limb fracture [Unknown]
  - Ankle fracture [Unknown]
  - Foot fracture [Unknown]
  - Cardiac failure congestive [Unknown]
  - Calcium deficiency [Unknown]
  - Chronic obstructive pulmonary disease [Unknown]
  - Cataract [Unknown]
  - Arthritis [Unknown]
  - Rheumatoid arthritis [Unknown]
  - Hypothyroidism [Unknown]
  - Osteopenia [Unknown]
  - Osteoarthritis [Unknown]
